FAERS Safety Report 4491945-5 (Version None)
Quarter: 2004Q4

REPORT INFORMATION
  Report Type: 
  Country: None (occurrence: None)
  Receive Date: 20041029
  Receipt Date: 20041029
  Transmission Date: 20050328
  Serious: No
  Sender: FDA-Public Use
  Company Number: None

PATIENT

DRUGS (1)
  1. MOBIC [Suspect]
     Dosage: TWO DAILY

REACTIONS (1)
  - NO ADVERSE EFFECT [None]
